FAERS Safety Report 4679439-5 (Version None)
Quarter: 2005Q2

REPORT INFORMATION
  Report Type: 
  Country: None (occurrence: None)
  Receive Date: 20050602
  Receipt Date: 20050524
  Transmission Date: 20051028
  Serious: Yes (Other)
  Sender: FDA-Public Use
  Company Number: ES-MERCK-0505ESP00039

PATIENT
  Age: 55 Year
  Sex: Male

DRUGS (7)
  1. VIOXX [Suspect]
     Indication: CHRONIC SINUSITIS
     Route: 065
  2. CLARITHROMYCIN [Concomitant]
     Indication: CHRONIC SINUSITIS
     Route: 065
  3. DICLOFENAC [Suspect]
     Indication: CHRONIC SINUSITIS
     Route: 065
  4. ERYTHROMYCIN [Suspect]
     Indication: CHRONIC SINUSITIS
     Route: 065
  5. MOXIFLOXACIN HYDROCHLORIDE [Suspect]
     Indication: CHRONIC SINUSITIS
     Route: 065
  6. AZITHROMYCIN [Concomitant]
     Indication: CHRONIC SINUSITIS
     Route: 065
  7. CARBAMAZEPINE [Suspect]
     Route: 065

REACTIONS (3)
  - HEPATITIS [None]
  - HEPATOCELLULAR DAMAGE [None]
  - JAUNDICE [None]
